FAERS Safety Report 5463895-9 (Version None)
Quarter: 2007Q3

REPORT INFORMATION
  Report Type: 
  Country: None (occurrence: None)
  Receive Date: 20070814
  Receipt Date: 20070110
  Transmission Date: 20080115
  Serious: Yes (Hospitalization)
  Sender: FDA-Public Use
  Company Number: MEDI-0005274

PATIENT
  Age: 5 Month
  Weight: 5.3978 kg

DRUGS (1)
  1. SYNAGIS [Suspect]
     Indication: ANTIVIRAL PROPHYLAXIS
     Dosage: 78 MG
     Dates: start: 20061215, end: 20061215

REACTIONS (2)
  - RESPIRATORY DISTRESS [None]
  - WHEEZING [None]
